FAERS Safety Report 18182482 (Version 1)
Quarter: 2020Q3

REPORT INFORMATION
  Report Type: Spontaneous
  Country: US (occurrence: US)
  Receive Date: 20200821
  Receipt Date: 20200821
  Transmission Date: 20201103
  Serious: No
  Sender: FDA-Public Use
  Company Number: US-VERITY PHARMACEUTICALS, INC.-2020VTY00318

PATIENT
  Sex: Female
  Weight: 39 kg

DRUGS (3)
  1. TRIPTORELIN PAMOATE [Suspect]
     Active Substance: TRIPTORELIN PAMOATE
     Indication: PRECOCIOUS PUBERTY
     Dosage: 22.5 MG, SINGLE
     Route: 030
     Dates: start: 20180608, end: 20180608
  2. KEPPRA [Concomitant]
     Active Substance: LEVETIRACETAM
     Dosage: UNK
  3. TRIPTORELIN PAMOATE [Suspect]
     Active Substance: TRIPTORELIN PAMOATE
     Dosage: UNK
     Route: 065

REACTIONS (4)
  - Acne [Recovering/Resolving]
  - Mood altered [Not Recovered/Not Resolved]
  - Acne [Not Recovered/Not Resolved]
  - Hyperhidrosis [Not Recovered/Not Resolved]

NARRATIVE: CASE EVENT DATE: 2018
